FAERS Safety Report 4638230-6 (Version None)
Quarter: 2005Q2

REPORT INFORMATION
  Report Type: 
  Country: None (occurrence: None)
  Receive Date: 20050415
  Receipt Date: 20031001
  Transmission Date: 20051028
  Serious: Yes (Hospitalization)
  Sender: FDA-Public Use
  Company Number: A105

PATIENT
  Sex: Female
  Weight: 78.9259 kg

DRUGS (5)
  1. ALBUTEROL SULFATE [Suspect]
     Indication: CHRONIC OBSTRUCTIVE PULMONARY DISEASE
     Dosage: 3 CC FIRST INHALATION
     Route: 055
     Dates: start: 20031001
  2. ANDRX ALBUTEROL MDI [Concomitant]
  3. ZYRTEC [Concomitant]
  4. SINGULAIR [Concomitant]
  5. LEVAQUIN [Concomitant]

REACTIONS (5)
  - DYSPNOEA [None]
  - HEART RATE INCREASED [None]
  - HYPERTENSION [None]
  - HYPOAESTHESIA [None]
  - PARAESTHESIA [None]
